FAERS Safety Report 24634174 (Version 2)
Quarter: 2025Q1

REPORT INFORMATION
  Report Type: Report from Study
  Country: CA (occurrence: CA)
  Receive Date: 20241119
  Receipt Date: 20250310
  Transmission Date: 20250409
  Serious: Yes (Hospitalization, Other)
  Sender: TAKEDA
  Company Number: CA-TAKEDA-2024TUS005461

PATIENT
  Age: 71 Year
  Sex: Female

DRUGS (19)
  1. VEDOLIZUMAB [Suspect]
     Active Substance: VEDOLIZUMAB
     Indication: Colitis ulcerative
  2. VEDOLIZUMAB [Suspect]
     Active Substance: VEDOLIZUMAB
  3. VEDOLIZUMAB [Suspect]
     Active Substance: VEDOLIZUMAB
  4. VEDOLIZUMAB [Suspect]
     Active Substance: VEDOLIZUMAB
  5. VEDOLIZUMAB [Suspect]
     Active Substance: VEDOLIZUMAB
  6. VEDOLIZUMAB [Suspect]
     Active Substance: VEDOLIZUMAB
  7. PANTOPRAZOLE SODIUM [Suspect]
     Active Substance: PANTOPRAZOLE SODIUM
     Indication: Product used for unknown indication
  8. MESALAMINE [Concomitant]
     Active Substance: MESALAMINE
  9. SYNTHROID [Concomitant]
     Active Substance: LEVOTHYROXINE SODIUM
  10. EFFEXOR [Concomitant]
     Active Substance: VENLAFAXINE HYDROCHLORIDE
  11. VITAMIN D NOS [Concomitant]
     Active Substance: CHOLECALCIFEROL\ERGOCALCIFEROL
  12. Salofalk [Concomitant]
  13. PERINDOPRIL [Concomitant]
     Active Substance: PERINDOPRIL
  14. ASPIRIN [Concomitant]
     Active Substance: ASPIRIN
  15. OXAZEPAM [Concomitant]
     Active Substance: OXAZEPAM
  16. BISOPROLOL [Concomitant]
     Active Substance: BISOPROLOL
  17. VENLAFAXINE [Concomitant]
     Active Substance: VENLAFAXINE HYDROCHLORIDE
  18. ROSUVASTATIN [Concomitant]
     Active Substance: ROSUVASTATIN
  19. TICAGRELOR [Concomitant]
     Active Substance: TICAGRELOR

REACTIONS (6)
  - Myocardial infarction [Recovering/Resolving]
  - Abnormal faeces [Recovered/Resolved]
  - Frequent bowel movements [Unknown]
  - Food intolerance [Not Recovered/Not Resolved]
  - Diarrhoea [Not Recovered/Not Resolved]
  - Abdominal pain [Not Recovered/Not Resolved]

NARRATIVE: CASE EVENT DATE: 20241022
